FAERS Safety Report 11644408 (Version 2)
Quarter: 2016Q2

REPORT INFORMATION
  Report Type: Spontaneous
  Country: US (occurrence: US)
  Receive Date: 20151020
  Receipt Date: 20160525
  Transmission Date: 20160815
  Serious: No
  Sender: FDA-Public Use
  Company Number: US-ASTRAZENECA-2015SE98460

PATIENT
  Sex: Female
  Weight: 77.1 kg

DRUGS (1)
  1. TUDORZA PRESSAIR [Suspect]
     Active Substance: ACLIDINIUM BROMIDE
     Dosage: 400 MICROGRAMS TO BE TAKEN AS ONE INHALATION 2 TIMES PER DAY.
     Route: 055
     Dates: start: 201503

REACTIONS (3)
  - Non-cardiac chest pain [Unknown]
  - Cough [Unknown]
  - Intentional product misuse [Unknown]
